FAERS Safety Report 9563455 (Version 1)
Quarter: 2013Q3

REPORT INFORMATION
  Report Type: Spontaneous
  Country: US (occurrence: None)
  Receive Date: 20130926
  Receipt Date: 20130926
  Transmission Date: 20140515
  Serious: Yes (Hospitalization)
  Sender: FDA-Public Use
  Company Number: None

PATIENT
  Age: 65 Year
  Sex: Male
  Weight: 80 kg

DRUGS (21)
  1. WARFARIN [Suspect]
     Indication: THROMBOSIS PROPHYLAXIS
     Route: 048
     Dates: start: 20110518, end: 20110601
  2. AMIODARONE [Concomitant]
  3. ASCORBIC ACID [Concomitant]
  4. ASPIRIN [Concomitant]
  5. ATORVASTATIN [Concomitant]
  6. CLONAZEPAM [Concomitant]
  7. DILTIAZEM [Concomitant]
  8. DIPHENHYDRAMINE [Concomitant]
  9. DOCUSATE [Concomitant]
  10. ERGOCALCIFEROL [Concomitant]
  11. FUROSEMIDE [Concomitant]
  12. HYDROMORPHONE [Concomitant]
  13. INSULIN ASPART [Concomitant]
  14. LANSOPRAZOLE [Concomitant]
  15. LORAZEPAM [Concomitant]
  16. MAGNESIUM [Concomitant]
  17. METHYPREDNISOLONE [Concomitant]
  18. METOPROLOL [Concomitant]
  19. ONDANSETRON [Concomitant]
  20. SERTRALINE [Concomitant]
  21. SUCRALFATE [Concomitant]

REACTIONS (5)
  - International normalised ratio decreased [None]
  - International normalised ratio increased [None]
  - Haemoglobin decreased [None]
  - Haematochezia [None]
  - Gastrointestinal haemorrhage [None]
